FAERS Safety Report 8052771-3 (Version None)
Quarter: 2012Q1

REPORT INFORMATION
  Report Type: 
  Country: None (occurrence: None)
  Receive Date: 20120118
  Receipt Date: 20120112
  Transmission Date: 20120608
  Serious: Yes (Other)
  Sender: FDA-Public Use
  Company Number: PHEH2012US001204

PATIENT

DRUGS (1)
  1. DIOVAN HCT [Suspect]
     Dosage: UNK

REACTIONS (1)
  - URINARY RETENTION [None]
